FAERS Safety Report 7213040-4 (Version None)
Quarter: 2011Q1

REPORT INFORMATION
  Report Type: 
  Country: None (occurrence: None)
  Receive Date: 20110106
  Receipt Date: 20101228
  Transmission Date: 20110831
  Serious: Yes (Hospitalization)
  Sender: FDA-Public Use
  Company Number: B0689429A

PATIENT
  Sex: Male

DRUGS (10)
  1. DEPAKENE [Suspect]
     Indication: EPILEPSY
     Dosage: 800MG PER DAY
     Route: 048
     Dates: end: 20101121
  2. OLMETEC [Concomitant]
     Dosage: 20MG PER DAY
     Route: 048
  3. MECOBALAMIN [Concomitant]
     Dosage: 1.5MG PER DAY
     Route: 048
  4. CONIEL [Concomitant]
     Dosage: 4MG PER DAY
     Route: 048
  5. ASPIRIN [Concomitant]
     Dosage: 100MG PER DAY
     Route: 048
  6. AIROCOOL [Concomitant]
     Dosage: 60MG PER DAY
     Route: 048
  7. TAMSULOSIN [Concomitant]
     Dosage: .2MG PER DAY
     Route: 048
  8. LAMICTAL [Suspect]
     Indication: EPILEPSY
     Dosage: 150MG PER DAY
     Route: 048
     Dates: start: 20101122, end: 20101213
  9. UNKNOWN DRUG [Concomitant]
  10. MUCOSTA [Concomitant]
     Dosage: 15MCG PER DAY
     Route: 048

REACTIONS (4)
  - PARAESTHESIA ORAL [None]
  - DRUG ERUPTION [None]
  - URTICARIA [None]
  - PRURITUS [None]
